FAERS Safety Report 10193680 (Version 7)
Quarter: 2014Q3

REPORT INFORMATION
  Report Type: Spontaneous
  Country: US (occurrence: US)
  Receive Date: 20140524
  Receipt Date: 20140923
  Transmission Date: 20150326
  Serious: Yes (Hospitalization, Other)
  Sender: FDA-Public Use
  Company Number: US-SA-2013SA132560

PATIENT
  Age: 66 Year
  Sex: Female

DRUGS (21)
  1. HYDROCHLOROTHIAZIDE. [Concomitant]
     Active Substance: HYDROCHLOROTHIAZIDE
  2. NOVOLIN R [Concomitant]
     Active Substance: INSULIN HUMAN
  3. LANTUS SOLOSTAR [Suspect]
     Active Substance: INSULIN GLARGINE
     Indication: TYPE 2 DIABETES MELLITUS
     Dosage: DOSE:12 UNIT(S)
     Route: 065
  4. CLARITIN [Concomitant]
     Active Substance: LORATADINE
  5. ZYRTEC [Concomitant]
     Active Substance: CETIRIZINE HYDROCHLORIDE
  6. NOVOLIN R [Concomitant]
     Active Substance: INSULIN HUMAN
  7. LANTUS SOLOSTAR [Suspect]
     Active Substance: INSULIN GLARGINE
     Indication: TYPE 2 DIABETES MELLITUS
     Dosage: LANTUS LOWERED TO 17-18 UNITS AND GAVE HER TITRATION ORDERS?DOSE:24-36 UNITS?DAILY DOSE:24-36 UNITS
     Route: 058
  8. LANTUS SOLOSTAR [Suspect]
     Active Substance: INSULIN GLARGINE
     Indication: TYPE 2 DIABETES MELLITUS
     Dosage: DOSE:20 UNIT(S)
     Route: 065
  9. LANTUS SOLOSTAR [Suspect]
     Active Substance: INSULIN GLARGINE
     Indication: TYPE 2 DIABETES MELLITUS
     Dosage: DOSE - 18 UNITS + ANOTHER 5 UNITS AT MIDNIGHT
     Route: 065
     Dates: start: 20140813
  10. LANTUS SOLOSTAR [Suspect]
     Active Substance: INSULIN GLARGINE
     Indication: TYPE 2 DIABETES MELLITUS
     Dosage: LANTUS LOWERED TO 17-18 UNITS AND GAVE HER TITRATION ORDERS?DOSE:24-36 UNITS?DAILY DOSE:24-36 UNITS
     Route: 058
  11. AMLODIPINE [Concomitant]
     Active Substance: AMLODIPINE BESYLATE
  12. LANTUS SOLOSTAR [Suspect]
     Active Substance: INSULIN GLARGINE
     Indication: TYPE 2 DIABETES MELLITUS
     Dosage: DOSE: 24-36 UNITS?DAILY DOSE: 24-36 UNITS DOSE:30 UNIT(S)
     Route: 051
     Dates: start: 201303
  13. LANTUS SOLOSTAR [Suspect]
     Active Substance: INSULIN GLARGINE
     Indication: TYPE 2 DIABETES MELLITUS
     Route: 065
     Dates: start: 20140726
  14. LANTUS SOLOSTAR [Suspect]
     Active Substance: INSULIN GLARGINE
     Indication: TYPE 2 DIABETES MELLITUS
     Dosage: DOSE:20 UNIT(S)
     Route: 065
  15. NOVOLOG [Suspect]
     Active Substance: INSULIN ASPART
     Indication: PRODUCT USED FOR UNKNOWN INDICATION
     Dosage: DOSE:5 UNIT(S)
     Route: 065
  16. METFORMIN [Suspect]
     Active Substance: METFORMIN HYDROCHLORIDE
     Indication: PRODUCT USED FOR UNKNOWN INDICATION
     Route: 065
  17. LEVOTHYROXINE [Concomitant]
     Active Substance: LEVOTHYROXINE
  18. LOSARTAN [Concomitant]
     Active Substance: LOSARTAN
  19. LANTUS SOLOSTAR [Suspect]
     Active Substance: INSULIN GLARGINE
     Indication: TYPE 2 DIABETES MELLITUS
     Dosage: DOSE:10 UNIT(S)
     Route: 065
  20. NOVOLOG [Suspect]
     Active Substance: INSULIN ASPART
     Indication: PRODUCT USED FOR UNKNOWN INDICATION
     Route: 065
     Dates: end: 20131216
  21. SOLOSTAR [Concomitant]
     Active Substance: DEVICE
     Indication: TYPE 2 DIABETES MELLITUS
     Dates: start: 20131216

REACTIONS (34)
  - Pruritus [Recovering/Resolving]
  - Upper limb fracture [Unknown]
  - Trismus [Unknown]
  - Eye disorder [Unknown]
  - Hyperhidrosis [Unknown]
  - Cerebrovascular accident [Recovered/Resolved]
  - Heart rate increased [Unknown]
  - Blood glucose decreased [Unknown]
  - Libido increased [Recovered/Resolved]
  - Blood glucose increased [Unknown]
  - Hypersensitivity [Unknown]
  - Musculoskeletal discomfort [Unknown]
  - Dizziness [Unknown]
  - Thyroid disorder [Unknown]
  - Palpitations [Recovering/Resolving]
  - Skin haemorrhage [Unknown]
  - Blood glucose abnormal [Unknown]
  - VIIth nerve paralysis [Unknown]
  - Blood pressure increased [Unknown]
  - Hypoaesthesia [Unknown]
  - Discomfort [Unknown]
  - Petechiae [Unknown]
  - Angioedema [Unknown]
  - Chest discomfort [Recovering/Resolving]
  - Weight decreased [Unknown]
  - Unevaluable event [Unknown]
  - Malaise [Unknown]
  - Feeling cold [Unknown]
  - Product tampering [Unknown]
  - Ocular discomfort [Unknown]
  - Head discomfort [Recovering/Resolving]
  - Anxiety [Unknown]
  - Feeling hot [Unknown]
  - Drug dose omission [Unknown]

NARRATIVE: CASE EVENT DATE: 20131216
